FAERS Safety Report 10418159 (Version 1)
Quarter: 2014Q3

REPORT INFORMATION
  Report Type: Spontaneous
  Country: US (occurrence: None)
  Receive Date: 20140828
  Receipt Date: 20140828
  Transmission Date: 20150326
  Serious: Yes (Life-Threatening, Hospitalization)
  Sender: FDA-Public Use
  Company Number: None

PATIENT
  Age: 56 Year
  Sex: Male
  Weight: 89.9 kg

DRUGS (2)
  1. HEPARIN [Suspect]
     Active Substance: HEPARIN SODIUM
     Dosage: 5000 UNITS
     Route: 058
     Dates: start: 20140502, end: 20140507
  2. HEPARIN [Suspect]
     Active Substance: HEPARIN SODIUM
     Dosage: 1550 UNITS PER HOUR IV
     Route: 042
     Dates: start: 20140507, end: 20140508

REACTIONS (2)
  - Thrombosis [None]
  - Heparin-induced thrombocytopenia [None]

NARRATIVE: CASE EVENT DATE: 20140508
